FAERS Safety Report 12818217 (Version 1)
Quarter: 2016Q4

REPORT INFORMATION
  Report Type: Spontaneous
  Country: FR (occurrence: FR)
  Receive Date: 20161005
  Receipt Date: 20161005
  Transmission Date: 20170207
  Serious: Yes (Hospitalization, Other)
  Sender: FDA-Public Use
  Company Number: FR-TAKEDA-2016TJP021334

PATIENT
  Age: 41 Year
  Sex: Female

DRUGS (9)
  1. CLOBETASOL [Concomitant]
     Active Substance: CLOBETASOL
     Indication: RASH
     Dosage: UNK
  2. DIMETHICONE. [Concomitant]
     Active Substance: DIMETHICONE
     Indication: OESOPHAGEAL ULCER
     Dosage: UNK
  3. PREDNISOLONE. [Concomitant]
     Active Substance: PREDNISOLONE
     Indication: RASH
     Dosage: 50 MG, UNK, PREDNISOLONE (1 MG/KG/DAY) FROM DAY 50
  4. GUAIAZULENE [Concomitant]
     Active Substance: GUAIAZULENE
     Indication: OESOPHAGEAL ULCER
     Dosage: UNK
  5. PREDNISOLONE. [Concomitant]
     Active Substance: PREDNISOLONE
     Dosage: UNK
  6. PANTOPRAZOLE [Concomitant]
     Active Substance: PANTOPRAZOLE SODIUM
     Dosage: UNK, OVER 4 DAYS
  7. CISAPRIDE [Concomitant]
     Active Substance: CISAPRIDE
     Dosage: UNK
  8. OGAST [Suspect]
     Active Substance: LANSOPRAZOLE
     Indication: OESOPHAGEAL ULCER
     Dosage: UNK
     Route: 048
  9. METHYLPREDNISOLONE. [Concomitant]
     Active Substance: METHYLPREDNISOLONE
     Indication: ERYTHEMA
     Dosage: 40 MG, QD

REACTIONS (3)
  - Vasculitis [Recovering/Resolving]
  - Liver injury [Unknown]
  - Drug reaction with eosinophilia and systemic symptoms [Recovering/Resolving]
